FAERS Safety Report 9627133 (Version 2)
Quarter: 2013Q4

REPORT INFORMATION
  Report Type: Spontaneous
  Country: DE (occurrence: DE)
  Receive Date: 20131016
  Receipt Date: 20131023
  Transmission Date: 20140711
  Serious: Yes (Other)
  Sender: FDA-Public Use
  Company Number: DE-TEVA-438282GER

PATIENT
  Age: 57 Year
  Sex: 0

DRUGS (2)
  1. VALPROIC ACID [Suspect]
     Indication: SCHIZOAFFECTIVE DISORDER
     Route: 065
  2. LORAZEPAM [Interacting]
     Indication: SCHIZOAFFECTIVE DISORDER
     Dosage: UP TO 6 MG/DAY
     Route: 065

REACTIONS (3)
  - Hyperammonaemic encephalopathy [Recovering/Resolving]
  - Drug withdrawal syndrome [Recovering/Resolving]
  - Drug interaction [Unknown]
